FAERS Safety Report 15805977 (Version 1)
Quarter: 2019Q1

REPORT INFORMATION
  Report Type: Spontaneous
  Country: FR (occurrence: FR)
  Receive Date: 20190110
  Receipt Date: 20190110
  Transmission Date: 20190417
  Serious: Yes (Hospitalization)
  Sender: FDA-Public Use
  Company Number: FR-ROCHE-2239870

PATIENT
  Age: 34 Year
  Sex: Male
  Weight: 80 kg

DRUGS (9)
  1. DIAZEPAM. [Suspect]
     Active Substance: DIAZEPAM
     Indication: ANXIETY
     Dosage: 15 MG/DAY
     Route: 048
     Dates: start: 20150215
  2. SULFARLEM [Suspect]
     Active Substance: ANETHOLTRITHION
     Indication: APTYALISM
     Dosage: 100 MG/DAY
     Route: 048
  3. ALIMEMAZINE [Suspect]
     Active Substance: TRIMEPRAZINE
     Indication: INSOMNIA
     Dosage: UNIT DOSE: 25 DROPS/DAY
     Route: 048
  4. BIPERIDEN HYDROCHLORIDE [Suspect]
     Active Substance: BIPERIDEN HYDROCHLORIDE
     Indication: MUSCLE CONTRACTURE
     Dosage: 4 MG/DAY
     Route: 048
  5. ZOPICLONE [Suspect]
     Active Substance: ZOPICLONE
     Indication: INSOMNIA
     Dosage: 7.5 MG
     Route: 048
  6. LOXAPINE. [Suspect]
     Active Substance: LOXAPINE
     Indication: AGITATION
     Route: 048
     Dates: start: 20150215
  7. ABILIFY [Suspect]
     Active Substance: ARIPIPRAZOLE
     Indication: PSYCHOTIC DISORDER
     Route: 048
     Dates: start: 20150219, end: 20150326
  8. ABILIFY [Suspect]
     Active Substance: ARIPIPRAZOLE
     Indication: PSYCHOTIC DISORDER
     Route: 030
     Dates: start: 20150313, end: 20150326
  9. THIAMINE. [Suspect]
     Active Substance: THIAMINE
     Indication: VITAMIN B1 DEFICIENCY
     Dosage: 500 MG/DAY
     Route: 048
     Dates: start: 20150215

REACTIONS (5)
  - Rash [Recovered/Resolved]
  - Erythrosis [Recovered/Resolved]
  - Off label use [Unknown]
  - Blister [Recovered/Resolved]
  - Pruritus [Recovered/Resolved]

NARRATIVE: CASE EVENT DATE: 20150320
